FAERS Safety Report 12888240 (Version 5)
Quarter: 2017Q1

REPORT INFORMATION
  Report Type: Spontaneous
  Country: US (occurrence: US)
  Receive Date: 20161027
  Receipt Date: 20170309
  Transmission Date: 20170428
  Serious: Yes (Other)
  Sender: FDA-Public Use
  Company Number: PHEH2016US027883

PATIENT
  Sex: Female
  Weight: 77 kg

DRUGS (1)
  1. ZOFRAN [Suspect]
     Active Substance: ONDANSETRON HYDROCHLORIDE
     Indication: VOMITING IN PREGNANCY
     Dosage: 4 MG, TID
     Route: 048
     Dates: start: 20060616, end: 20060619

REACTIONS (6)
  - Maternal exposure during pregnancy [Unknown]
  - Vulvovaginal candidiasis [Unknown]
  - Product use issue [Unknown]
  - Injury [Unknown]
  - Urinary tract infection [Unknown]
  - Cervical dysplasia [Unknown]
